FAERS Safety Report 18767366 (Version 1)
Quarter: 2021Q1

REPORT INFORMATION
  Report Type: Spontaneous
  Country: US (occurrence: US)
  Receive Date: 20210121
  Receipt Date: 20210121
  Transmission Date: 20210419
  Serious: Yes (Other)
  Sender: FDA-Public Use
  Company Number: None

PATIENT
  Age: 51 Year
  Sex: Female
  Weight: 67.5 kg

DRUGS (12)
  1. VITAMIN C [Concomitant]
     Active Substance: ASCORBIC ACID
  2. FEROCON [Concomitant]
     Active Substance: FERROUS FUMARATE\FOLIC ACID\VITAMIN B COMPLEX
  3. D2 [Concomitant]
  4. NAC [Concomitant]
  5. TIROSINT 50?75 MCG [Concomitant]
  6. LIOTHYRONINE SODIUM 5 MCG [Concomitant]
     Active Substance: LIOTHYRONINE SODIUM
  7. ALBUTEROL PRN [Concomitant]
  8. ZINC. [Concomitant]
     Active Substance: ZINC
  9. LIOTHYRONINE SODIUM TABLETS, USP [Suspect]
     Active Substance: LIOTHYRONINE SODIUM
     Indication: AUTOIMMUNE THYROIDITIS
     Dosage: ?          QUANTITY:30 TABLET(S);?
     Route: 048
  10. RIZATRIPTAN PRN [Concomitant]
  11. BABY ASPIRIN [Concomitant]
     Active Substance: ASPIRIN
  12. MULTIVITAMIN [Concomitant]
     Active Substance: VITAMINS

REACTIONS (5)
  - Suspected product contamination [None]
  - Product substitution issue [None]
  - Migraine [None]
  - Product formulation issue [None]
  - Tachycardia [None]

NARRATIVE: CASE EVENT DATE: 20190601
